FAERS Safety Report 24141360 (Version 1)
Quarter: 2024Q3

REPORT INFORMATION
  Report Type: Spontaneous
  Country: DE (occurrence: DE)
  Receive Date: 20240726
  Receipt Date: 20240726
  Transmission Date: 20241017
  Serious: Yes (Other)
  Sender: MSN LABORATORIES
  Company Number: None

PATIENT

DRUGS (2)
  1. FEBUXOSTAT [Suspect]
     Active Substance: FEBUXOSTAT
     Indication: Gout
     Dosage: 80 MG
     Route: 048
     Dates: start: 20230628, end: 20230709
  2. FEBUXOSTAT [Suspect]
     Active Substance: FEBUXOSTAT
     Indication: Lyme disease

REACTIONS (9)
  - Paralysis [Recovering/Resolving]
  - Musculoskeletal discomfort [Recovering/Resolving]
  - Pain [Recovering/Resolving]
  - Pyrexia [Recovering/Resolving]
  - Muscle atrophy [Recovering/Resolving]
  - Decreased appetite [Recovering/Resolving]
  - Increased appetite [Recovering/Resolving]
  - Weight decreased [Recovering/Resolving]
  - Arthritis [Recovering/Resolving]

NARRATIVE: CASE EVENT DATE: 20230618
